FAERS Safety Report 20140269 (Version 2)
Quarter: 2021Q4

REPORT INFORMATION
  Report Type: Spontaneous
  Country: DE (occurrence: DE)
  Receive Date: 20211202
  Receipt Date: 20211216
  Transmission Date: 20220303
  Serious: Yes (Hospitalization, Other)
  Sender: FDA-Public Use
  Company Number: DE-ORGANON-O2110DEU000141

PATIENT
  Age: 71 Year
  Sex: Male

DRUGS (5)
  1. FINASTERIDE [Suspect]
     Active Substance: FINASTERIDE
     Indication: Benign prostatic hyperplasia
     Dosage: UNK
     Route: 048
     Dates: start: 2011
  2. PROSCAR [Suspect]
     Active Substance: FINASTERIDE
     Indication: Benign prostatic hyperplasia
     Dosage: UNK
     Route: 048
  3. TAMSULOSIN [Concomitant]
     Active Substance: TAMSULOSIN
     Indication: Urinary retention
     Dosage: 0.4 MILLIGRAM, QD(0-0-0-0.4 MG (10 YEARS AGO))
     Dates: start: 2011
  4. CANDESARTAN [Concomitant]
     Active Substance: CANDESARTAN
     Indication: Hypertension
     Dosage: 32 MILLIGRAM, QD(16-0-0-16 MG)
  5. ATORVASTATIN [Concomitant]
     Active Substance: ATORVASTATIN
     Indication: Lipid metabolism disorder
     Dosage: 10 MILLIGRAM, QD(0-0-10 MG-0 )

REACTIONS (5)
  - Suicidal ideation [Recovering/Resolving]
  - Depression [Not Recovered/Not Resolved]
  - Suicide attempt [Unknown]
  - Delusion [Unknown]
  - Anxiety [Unknown]

NARRATIVE: CASE EVENT DATE: 20110101
